FAERS Safety Report 20940264 (Version 2)
Quarter: 2022Q2

REPORT INFORMATION
  Report Type: Spontaneous
  Country: IT (occurrence: IT)
  Receive Date: 20220609
  Receipt Date: 20220623
  Transmission Date: 20220721
  Serious: Yes (Other)
  Sender: FDA-Public Use
  Company Number: IT-TEVA-2022-IT-2043512

PATIENT
  Age: 69 Year
  Sex: Female

DRUGS (6)
  1. GEMCITABINE [Suspect]
     Active Substance: GEMCITABINE
     Indication: Cutaneous T-cell lymphoma
     Dosage: 5 CYCLES
     Route: 065
     Dates: start: 2012
  2. METHOTREXATE [Suspect]
     Active Substance: METHOTREXATE
     Indication: Cutaneous T-cell lymphoma
     Route: 065
     Dates: start: 2013
  3. INTERFERON [Concomitant]
     Active Substance: INTERFERON
     Indication: Cutaneous T-cell lymphoma
     Route: 065
     Dates: start: 2003
  4. BEXAROTENE [Concomitant]
     Active Substance: BEXAROTENE
     Indication: Cutaneous T-cell lymphoma
     Route: 065
     Dates: start: 2010
  5. MOGAMULIZUMAB [Concomitant]
     Active Substance: MOGAMULIZUMAB
     Indication: Cutaneous T-cell lymphoma
     Dosage: 11 CYCLES; A PHASE II MAVORIC TRIAL
     Route: 065
     Dates: start: 201608
  6. TINOSTAMUSTINE [Concomitant]
     Active Substance: TINOSTAMUSTINE
     Indication: Cutaneous T-cell lymphoma
     Dosage: A CLINICAL TRIAL NCT02576496; 6 CYCLES
     Route: 065

REACTIONS (2)
  - Haematotoxicity [Unknown]
  - Drug ineffective [Unknown]
